FAERS Safety Report 17295714 (Version 1)
Quarter: 2020Q1

REPORT INFORMATION
  Report Type: Report from Study
  Country: IL (occurrence: IL)
  Receive Date: 20200121
  Receipt Date: 20200121
  Transmission Date: 20200409
  Serious: Yes (Congenital Anomaly)
  Sender: FDA-Public Use
  Company Number: IL-VISTAPHARM, INC.-VER202001-000151

PATIENT
  Age: 40 Week
  Sex: Male
  Weight: 2.76 kg

DRUGS (1)
  1. VALPROIC ACID. [Suspect]
     Active Substance: VALPROIC ACID
     Dosage: UNKNOWN
     Route: 064

REACTIONS (5)
  - Foetal exposure during pregnancy [Unknown]
  - Foetal anticonvulsant syndrome [Not Recovered/Not Resolved]
  - Hypospadias [Not Recovered/Not Resolved]
  - Cryptorchism [Not Recovered/Not Resolved]
  - Atrial septal defect [Not Recovered/Not Resolved]
